FAERS Safety Report 4942870-4 (Version None)
Quarter: 2006Q1

REPORT INFORMATION
  Report Type: 
  Country: None (occurrence: None)
  Receive Date: 20060309
  Receipt Date: 20060224
  Transmission Date: 20060701
  Serious: Yes (Other)
  Sender: FDA-Public Use
  Company Number: 2006029943

PATIENT
  Age: 40 Year
  Sex: Male

DRUGS (1)
  1. LOMOTIL [Suspect]
     Indication: DRUG WITHDRAWAL SYNDROME
     Dosage: 25 TO 30 TABLETS 1 D

REACTIONS (19)
  - ABNORMAL BEHAVIOUR [None]
  - AGITATION [None]
  - APATHY [None]
  - CONSTIPATION [None]
  - DECREASED APPETITE [None]
  - DELUSION OF REFERENCE [None]
  - DRUG DEPENDENCE [None]
  - DRUG WITHDRAWAL SYNDROME [None]
  - EUPHORIC MOOD [None]
  - FEAR [None]
  - HALLUCINATION [None]
  - INTENTIONAL DRUG MISUSE [None]
  - JUDGEMENT IMPAIRED [None]
  - NEGLECT OF PERSONAL APPEARANCE [None]
  - PERSECUTORY DELUSION [None]
  - SCHIZOPHRENIA, PARANOID TYPE [None]
  - SLEEP DISORDER [None]
  - SOCIAL AVOIDANT BEHAVIOUR [None]
  - SPEECH DISORDER [None]
